FAERS Safety Report 10674658 (Version 1)
Quarter: 2014Q4

REPORT INFORMATION
  Report Type: Spontaneous
  Country: US (occurrence: US)
  Receive Date: 20141224
  Receipt Date: 20141224
  Transmission Date: 20150529
  Serious: Yes (Other)
  Sender: FDA-Public Use
  Company Number: US-PFIZER INC-2014350224

PATIENT
  Age: 67 Year
  Sex: Female
  Weight: 57 kg

DRUGS (7)
  1. PREMPRO [Suspect]
     Active Substance: ESTROGENS, CONJUGATED\MEDROXYPROGESTERONE ACETATE
     Indication: VAGINAL HAEMORRHAGE
     Dosage: UNK UNK, 1X/DAY
     Route: 048
     Dates: start: 1992
  2. ALPRAZOLAM. [Concomitant]
     Active Substance: ALPRAZOLAM
     Indication: ANXIETY
     Dosage: 1 MG, 1X/DAY
     Route: 048
  3. CLONAZEPAM. [Concomitant]
     Active Substance: CLONAZEPAM
     Indication: ANXIETY
     Dosage: 1 MG, 1X/DAY
     Route: 048
  4. PREMPHASE [Suspect]
     Active Substance: ESTROGENS, CONJUGATED\MEDROXYPROGESTERONE ACETATE
  5. SYNTHROID [Concomitant]
     Active Substance: LEVOTHYROXINE SODIUM
     Dosage: 100MCG TABLETS BY MOUTH FOR DAYS ALTERNATING WITH 88MCG TABLETS BY MOUTH FOR FOUR DAYS
     Route: 048
  6. FLOVENT [Suspect]
     Active Substance: FLUTICASONE PROPIONATE
     Indication: ASTHMA
     Dosage: 110 ?G, 2X/DAY (110 MCG TWO PUFFS BY MOUTH TWICE DAILY) FOUR TIMES A WEEK
     Route: 048
  7. CLONAZEPAM. [Concomitant]
     Active Substance: CLONAZEPAM
     Indication: INSOMNIA

REACTIONS (17)
  - Spinal fracture [Not Recovered/Not Resolved]
  - Thyroid disorder [Not Recovered/Not Resolved]
  - Anxiety [Unknown]
  - Weight gain poor [Not Recovered/Not Resolved]
  - Increased appetite [Not Recovered/Not Resolved]
  - Insomnia [Not Recovered/Not Resolved]
  - Alopecia [Not Recovered/Not Resolved]
  - Product use issue [Unknown]
  - Osteopenia [Not Recovered/Not Resolved]
  - Asthenia [Not Recovered/Not Resolved]
  - Panic attack [Not Recovered/Not Resolved]
  - Vulvovaginal dryness [Unknown]
  - Drug dose omission [Not Recovered/Not Resolved]
  - Osteoporosis [Not Recovered/Not Resolved]
  - Depression [Not Recovered/Not Resolved]
  - Fatigue [Not Recovered/Not Resolved]
  - Weight decreased [Not Recovered/Not Resolved]

NARRATIVE: CASE EVENT DATE: 1992
